FAERS Safety Report 20866244 (Version 1)
Quarter: 2022Q2

REPORT INFORMATION
  Report Type: Spontaneous
  Country: US (occurrence: None)
  Receive Date: 20220523
  Receipt Date: 20220523
  Transmission Date: 20220720
  Serious: Yes (Hospitalization)
  Sender: FDA-Public Use
  Company Number: None

PATIENT
  Age: 86 Year
  Sex: Male
  Weight: 87 kg

DRUGS (3)
  1. WARFARIN [Suspect]
     Active Substance: WARFARIN
     Indication: Atrial fibrillation
     Dosage: FREQUENCY : DAILY;?
     Route: 048
     Dates: start: 20020613
  2. WARFARIN [Suspect]
     Active Substance: WARFARIN
     Dosage: FREQUENCY : TWICE A DAY;?
     Route: 058
  3. ENOXAPARIN [Suspect]
     Active Substance: ENOXAPARIN
     Route: 058

REACTIONS (4)
  - Lower gastrointestinal haemorrhage [None]
  - Dizziness [None]
  - Anaemia [None]
  - International normalised ratio abnormal [None]

NARRATIVE: CASE EVENT DATE: 20210804
